FAERS Safety Report 9361126 (Version 1)
Quarter: 2013Q2

REPORT INFORMATION
  Report Type: Spontaneous
  Country: US (occurrence: US)
  Receive Date: 20130621
  Receipt Date: 20130621
  Transmission Date: 20140414
  Serious: Yes (Hospitalization)
  Sender: FDA-Public Use
  Company Number: US-BAYER-2013-076424

PATIENT
  Age: 29 Year
  Sex: Female

DRUGS (4)
  1. YASMIN [Suspect]
  2. YAZ [Suspect]
     Indication: MENSTRUAL CYCLE MANAGEMENT
  3. PROPYLTHIOURACIL [Concomitant]
     Dosage: 50 MG, UNK
  4. METOPROLOL SUCCINATE [Concomitant]
     Dosage: 25 MG, UNK

REACTIONS (1)
  - Deep vein thrombosis [None]
